FAERS Safety Report 13788414 (Version 1)
Quarter: 2017Q3

REPORT INFORMATION
  Report Type: Spontaneous
  Country: US (occurrence: US)
  Receive Date: 20170725
  Receipt Date: 20170725
  Transmission Date: 20171127
  Serious: No
  Sender: FDA-Public Use
  Company Number: US-UNITED THERAPEUTICS-UNT-2016-018232

PATIENT
  Age: 67 Year
  Sex: Female
  Weight: 72.56 kg

DRUGS (4)
  1. ORENITRAM [Suspect]
     Active Substance: TREPROSTINIL
     Indication: PULMONARY ARTERIAL HYPERTENSION
     Dosage: 2.25 MG, TID
     Route: 048
     Dates: start: 20160830
  2. ORENITRAM [Suspect]
     Active Substance: TREPROSTINIL
     Dosage: UNK
     Route: 048
  3. CALCIUM CHANNEL BLOCKERS [Concomitant]
     Active Substance: UNSPECIFIED INGREDIENT
     Indication: PRODUCT USED FOR UNKNOWN INDICATION
  4. AMLODIPINE [Concomitant]
     Active Substance: AMLODIPINE BESYLATE
     Indication: PRODUCT USED FOR UNKNOWN INDICATION

REACTIONS (5)
  - Asthenia [Unknown]
  - Pulmonary arterial hypertension [Unknown]
  - Fatigue [Unknown]
  - Blood iron decreased [Unknown]
  - Influenza [Unknown]

NARRATIVE: CASE EVENT DATE: 201611
